FAERS Safety Report 5242259-7 (Version None)
Quarter: 2007Q1

REPORT INFORMATION
  Report Type: 
  Country: None (occurrence: None)
  Receive Date: 20070216
  Receipt Date: 20070216
  Transmission Date: 20070707
  Serious: Yes (Other)
  Sender: FDA-Public Use
  Company Number: None

PATIENT
  Sex: Female
  Weight: 68.0396 kg

DRUGS (1)
  1. CRESTOR [Suspect]
     Indication: BLOOD CHOLESTEROL INCREASED
     Dosage: ONCE  DAILY  PO
     Route: 048
     Dates: start: 20060110, end: 20061122

REACTIONS (4)
  - ARTHRITIS [None]
  - HYPOAESTHESIA [None]
  - MYALGIA [None]
  - OEDEMA PERIPHERAL [None]
